FAERS Safety Report 16694780 (Version 4)
Quarter: 2019Q4

REPORT INFORMATION
  Report Type: Spontaneous
  Country: US (occurrence: US)
  Receive Date: 20190812
  Receipt Date: 20191010
  Transmission Date: 20200122
  Serious: No
  Sender: FDA-Public Use
  Company Number: US-009507513-1908USA001710

PATIENT
  Age: 27 Year
  Sex: Female
  Weight: 56.24 kg

DRUGS (1)
  1. NEXPLANON [Suspect]
     Active Substance: ETONOGESTREL
     Indication: CONTRACEPTION
     Dosage: 1 ROD EVERY 3 YEARS, ONCE, IN THE RIGHT ARM
     Route: 059
     Dates: start: 20190729, end: 20190729

REACTIONS (4)
  - Product quality issue [Recovering/Resolving]
  - No adverse event [Unknown]
  - Device difficult to use [Not Recovered/Not Resolved]
  - Complication of device insertion [Not Recovered/Not Resolved]

NARRATIVE: CASE EVENT DATE: 20190729
